APPROVED DRUG PRODUCT: HYDROCORTISONE
Active Ingredient: HYDROCORTISONE
Strength: 1%
Dosage Form/Route: LOTION;TOPICAL
Application: A087315 | Product #001
Applicant: ALPHARMA US PHARMACEUTICALS DIVISION
Approved: Jun 7, 1982 | RLD: No | RS: No | Type: DISCN